FAERS Safety Report 8681509 (Version 2)
Quarter: 2012Q4

REPORT INFORMATION
  Report Type: 
  Country: GB (occurrence: GB)
  Receive Date: 20120725
  Receipt Date: 20121011
  Transmission Date: 20130627
  Serious: Yes (Other)
  Sender: FDA-Public Use
  Company Number: GB-JNJFOC-20120710683

PATIENT
  Age: 60 None
  Sex: Female
  Weight: 159 kg

DRUGS (11)
  1. SIMPONI [Suspect]
     Indication: PSORIATIC ARTHROPATHY
     Route: 058
  2. SIMPONI [Suspect]
     Indication: PSORIATIC ARTHROPATHY
     Route: 058
     Dates: start: 20120620, end: 20120720
  3. CLOPIDOGREL [Concomitant]
     Route: 065
  4. SPIRONOLACTONE [Concomitant]
     Route: 065
  5. FUROSEMIDE [Concomitant]
     Route: 065
  6. AMLODIPINE [Concomitant]
     Route: 065
  7. VALSARTAN [Concomitant]
     Route: 065
  8. PARACETAMOL [Concomitant]
     Route: 065
  9. ATORVASTATIN [Concomitant]
     Route: 065
  10. AMITRIPTYLIN [Concomitant]
     Route: 065
  11. LACTULOSE [Concomitant]
     Route: 065

REACTIONS (4)
  - Tonsillitis [Recovered/Resolved]
  - Oedema peripheral [Recovered/Resolved]
  - Vein discolouration [Recovered/Resolved]
  - Hyperhidrosis [Recovered/Resolved]
